FAERS Safety Report 6786187-4 (Version None)
Quarter: 2010Q2

REPORT INFORMATION
  Report Type: 
  Country: None (occurrence: None)
  Receive Date: 20100622
  Receipt Date: 20100622
  Transmission Date: 20101027
  Serious: Yes (Hospitalization)
  Sender: FDA-Public Use
  Company Number: None

PATIENT
  Weight: 66.2 kg

DRUGS (2)
  1. TARCEVA [Suspect]
  2. VIDAZA [Suspect]

REACTIONS (2)
  - BRONCHOPNEUMONIA [None]
  - FEBRILE NEUTROPENIA [None]
